FAERS Safety Report 16570049 (Version 4)
Quarter: 2021Q1

REPORT INFORMATION
  Report Type: Spontaneous
  Country: US (occurrence: US)
  Receive Date: 20190715
  Receipt Date: 20210127
  Transmission Date: 20210419
  Serious: No
  Sender: FDA-Public Use
  Company Number: US-PFIZER INC-2016490691

PATIENT
  Age: 8 Year
  Sex: Male
  Weight: 49.9 kg

DRUGS (6)
  1. RAPAMUNE [Suspect]
     Active Substance: SIROLIMUS
     Dosage: 1 MG, 2X/DAY
  2. RAPAMUNE [Suspect]
     Active Substance: SIROLIMUS
     Indication: LYMPHANGIOMA
     Dosage: 1 MG, 2X/DAY (EVERY 12 HOURS)
  3. RAPAMUNE [Suspect]
     Active Substance: SIROLIMUS
     Dosage: 2 MG, 1X/DAY (EVERY EVENING)
  4. RAPAMUNE [Suspect]
     Active Substance: SIROLIMUS
     Dosage: 3 MG, DAILY, (2 MG IN THE MORNING AND 1 MG AT NIGHT)
     Route: 048
  5. RAPAMUNE [Suspect]
     Active Substance: SIROLIMUS
     Indication: LYMPHATIC DISORDER
     Dosage: 2 MG, 2X/DAY
     Route: 048
     Dates: start: 201003
  6. RAPAMUNE [Suspect]
     Active Substance: SIROLIMUS
     Indication: PAIN
     Dosage: 1 MG, 1X/DAY (EVERY MORNING)

REACTIONS (3)
  - Intercepted product dispensing error [Unknown]
  - Off label use [Recovered/Resolved]
  - Off label use [Unknown]

NARRATIVE: CASE EVENT DATE: 2012
